FAERS Safety Report 12356714 (Version 1)
Quarter: 2016Q2

REPORT INFORMATION
  Report Type: Spontaneous
  Country: US (occurrence: US)
  Receive Date: 20160511
  Receipt Date: 20160511
  Transmission Date: 20160815
  Serious: No
  Sender: FDA-Public Use
  Company Number: US-FRI-1000084102

PATIENT
  Sex: Female

DRUGS (1)
  1. FETZIMA [Suspect]
     Active Substance: LEVOMILNACIPRAN HYDROCHLORIDE
     Route: 048

REACTIONS (2)
  - Weight increased [Unknown]
  - Blood pressure increased [Recovered/Resolved]
